FAERS Safety Report 7151055-5 (Version None)
Quarter: 2010Q4

REPORT INFORMATION
  Report Type: 
  Country: None (occurrence: None)
  Receive Date: 20101210
  Receipt Date: 20101130
  Transmission Date: 20110411
  Serious: Yes (Life-Threatening, Hospitalization)
  Sender: FDA-Public Use
  Company Number: US-SANOFI-AVENTIS-2010SA066570

PATIENT
  Sex: Female

DRUGS (1)
  1. PLAVIX [Suspect]
     Route: 065

REACTIONS (1)
  - GASTROINTESTINAL DISORDER [None]
